FAERS Safety Report 17338097 (Version 1)
Quarter: 2020Q1

REPORT INFORMATION
  Report Type: Spontaneous
  Country: KR (occurrence: CA)
  Receive Date: 20200129
  Receipt Date: 20200129
  Transmission Date: 20200409
  Serious: Yes (Other)
  Sender: FDA-Public Use
  Company Number: KR-SA-2020SA019435

PATIENT
  Sex: Female

DRUGS (3)
  1. CELECOXIB. [Concomitant]
     Active Substance: CELECOXIB
     Indication: PRODUCT USED FOR UNKNOWN INDICATION
     Dosage: UNK
     Route: 065
  2. ARAVA [Suspect]
     Active Substance: LEFLUNOMIDE
     Indication: PRODUCT USED FOR UNKNOWN INDICATION
     Dosage: 20 MG
     Route: 065
  3. HUMIRA [Suspect]
     Active Substance: ADALIMUMAB
     Indication: RHEUMATOID ARTHRITIS
     Dosage: UNK
     Route: 058

REACTIONS (8)
  - Surgery [Unknown]
  - Urinary tract infection [Unknown]
  - Drug intolerance [Unknown]
  - Foot deformity [Unknown]
  - Drug ineffective [Unknown]
  - Arthritis [Unknown]
  - Joint swelling [Unknown]
  - Hip arthroplasty [Unknown]
